FAERS Safety Report 20073963 (Version 1)
Quarter: 2021Q4

REPORT INFORMATION
  Report Type: Spontaneous
  Country: US (occurrence: None)
  Receive Date: 20211112
  Receipt Date: 20211112
  Transmission Date: 20220304
  Serious: Yes (Hospitalization)
  Sender: FDA-Public Use
  Company Number: None

PATIENT
  Sex: Male
  Weight: 60.1 kg

DRUGS (6)
  1. ONCASPAR [Suspect]
     Active Substance: PEGASPARGASE
     Dates: end: 20211109
  2. CYCLOPHOSPHAMIDE [Suspect]
     Active Substance: CYCLOPHOSPHAMIDE
     Dates: end: 20211026
  3. CYTARABINE [Suspect]
     Active Substance: CYTARABINE
     Dates: end: 20211105
  4. MERCAPTOPURINE [Suspect]
     Active Substance: MERCAPTOPURINE
     Dates: end: 20211108
  5. METHOTREXATE [Suspect]
     Active Substance: METHOTREXATE
     Dates: end: 20211108
  6. VINCRISTINE SULFATE [Suspect]
     Active Substance: VINCRISTINE SULFATE
     Dates: end: 20211019

REACTIONS (4)
  - Hypotension [None]
  - Bradycardia [None]
  - Cardio-respiratory arrest [None]
  - Anaphylactic reaction [None]

NARRATIVE: CASE EVENT DATE: 20211109
